FAERS Safety Report 8173009-2 (Version None)
Quarter: 2012Q1

REPORT INFORMATION
  Report Type: 
  Country: None (occurrence: None)
  Receive Date: 20120229
  Receipt Date: 20120221
  Transmission Date: 20120608
  Serious: Yes (Hospitalization, Other)
  Sender: FDA-Public Use
  Company Number: US-BAYER-2012-018560

PATIENT
  Age: 42 Year
  Sex: Female
  Weight: 117.91 kg

DRUGS (10)
  1. ACETYLSALICYLIC ACID SRT [Concomitant]
  2. PAXIL [Concomitant]
  3. YAZ [Suspect]
     Dosage: UNK
  4. DOXEPIN HCL [Concomitant]
  5. SINGULAIR [Concomitant]
  6. AMITRIPTYLINE HCL [Concomitant]
  7. YAZ [Suspect]
     Dosage: UNK
     Route: 048
     Dates: start: 20080220
  8. VALIUM [Concomitant]
  9. VICODIN [Concomitant]
  10. METOPROLOL [Concomitant]

REACTIONS (1)
  - CONVULSION [None]
